FAERS Safety Report 7876156-5 (Version None)
Quarter: 2011Q4

REPORT INFORMATION
  Report Type: 
  Country: None (occurrence: None)
  Receive Date: 20111031
  Receipt Date: 20111026
  Transmission Date: 20120403
  Serious: Yes (Disabling)
  Sender: FDA-Public Use
  Company Number: CA-ELI_LILLY_AND_COMPANY-CA201108006552

PATIENT
  Sex: Female
  Weight: 71 kg

DRUGS (6)
  1. ADCIRCA [Suspect]
     Dosage: 20 MG, BID
  2. ADCIRCA [Suspect]
     Dosage: 40 MG, QD
     Route: 048
  3. NEXIUM [Concomitant]
     Dosage: 40 MG, QD
  4. MAXERAN [Concomitant]
     Dosage: 10 MG, QD
  5. ZANTAC [Concomitant]
     Dosage: 300 MG, EACH EVENING
  6. ADCIRCA [Suspect]
     Indication: PULMONARY HYPERTENSION
     Dosage: 10 MG, QID
     Route: 048
     Dates: start: 20101014, end: 20110825

REACTIONS (5)
  - PRESYNCOPE [None]
  - GASTROOESOPHAGEAL REFLUX DISEASE [None]
  - FUNCTIONAL GASTROINTESTINAL DISORDER [None]
  - HYPOTENSION [None]
  - DIARRHOEA [None]
